FAERS Safety Report 9179218 (Version 2)
Quarter: 2013Q2

REPORT INFORMATION
  Report Type: Report from Study
  Country: AU (occurrence: AU)
  Receive Date: 20130321
  Receipt Date: 20130513
  Transmission Date: 20140414
  Serious: Yes (Other)
  Sender: FDA-Public Use
  Company Number: AU-ROCHE-1203537

PATIENT
  Sex: Female

DRUGS (19)
  1. LUCENTIS [Suspect]
     Indication: AGE-RELATED MACULAR DEGENERATION
     Route: 050
     Dates: start: 201203
  2. MORPHINE [Concomitant]
  3. APO-OXAZEPAM [Concomitant]
  4. AVINZA [Concomitant]
  5. BECONASE [Concomitant]
  6. BISACODYL [Concomitant]
  7. CLOPIDOGREL [Concomitant]
  8. COLOXYL [Concomitant]
  9. ESOMEPRAZOLE [Concomitant]
  10. FML LIQUIFILM [Concomitant]
  11. FUROSEMIDE [Concomitant]
  12. MS CONTIN [Concomitant]
  13. NIFEDIPINE [Concomitant]
  14. PARACETAMOL [Concomitant]
  15. CODEINE [Concomitant]
  16. PERINDOPRIL [Concomitant]
  17. METAMUCIL [Concomitant]
  18. MICROLAX (AUSTRALIA) [Concomitant]
  19. ANASTROZOLE [Concomitant]

REACTIONS (1)
  - Heart rate increased [Recovered/Resolved]
